FAERS Safety Report 5234237-9 (Version None)
Quarter: 2007Q1

REPORT INFORMATION
  Report Type: 
  Country: None (occurrence: None)
  Receive Date: 20070207
  Receipt Date: 20070123
  Transmission Date: 20070707
  Serious: Yes (Other)
  Sender: FDA-Public Use
  Company Number: SPV1-2007-00529

PATIENT
  Age: 10 Year
  Sex: Male

DRUGS (2)
  1. DAYTRANA [Suspect]
     Indication: ATTENTION DEFICIT/HYPERACTIVITY DISORDER
     Dosage: 30 MG, TRANSDERMAL; 10 MG, TRANSDERMAL
     Route: 062
     Dates: start: 20061101, end: 20070123
  2. DAYTRANA [Suspect]
     Indication: ATTENTION DEFICIT/HYPERACTIVITY DISORDER
     Dosage: 30 MG, TRANSDERMAL; 10 MG, TRANSDERMAL
     Route: 062
     Dates: start: 20070123

REACTIONS (4)
  - DRUG DISPENSING ERROR [None]
  - INSOMNIA [None]
  - URTICARIA GENERALISED [None]
  - VOMITING [None]
